FAERS Safety Report 24909315 (Version 1)
Quarter: 2025Q1

REPORT INFORMATION
  Report Type: Spontaneous
  Country: TW (occurrence: TW)
  Receive Date: 20250131
  Receipt Date: 20250131
  Transmission Date: 20250408
  Serious: Yes (Other)
  Sender: RANBAXY
  Company Number: TW-SUN PHARMACEUTICAL INDUSTRIES LTD-2025RR-492117

PATIENT
  Age: 42 Year
  Sex: Female

DRUGS (6)
  1. ASPIRIN [Suspect]
     Active Substance: ASPIRIN
     Indication: Thrombosis
     Route: 065
  2. ANAGRELIDE [Suspect]
     Active Substance: ANAGRELIDE
     Indication: Thrombosis
     Route: 065
  3. AZACITIDINE [Suspect]
     Active Substance: AZACITIDINE
     Indication: Acute myeloid leukaemia
     Route: 065
  4. DECITABINE [Suspect]
     Active Substance: DECITABINE
     Indication: Acute myeloid leukaemia
     Route: 065
  5. HYDROXYUREA [Suspect]
     Active Substance: HYDROXYUREA
     Indication: Thrombosis
     Route: 065
  6. VENETOCLAX [Suspect]
     Active Substance: VENETOCLAX
     Indication: Acute myeloid leukaemia
     Route: 065

REACTIONS (4)
  - Skin hyperpigmentation [Unknown]
  - Pulmonary toxicity [Recovered/Resolved]
  - Disease progression [Unknown]
  - Pancytopenia [Unknown]
